FAERS Safety Report 24676031 (Version 3)
Quarter: 2024Q4

REPORT INFORMATION
  Report Type: Spontaneous
  Country: FR (occurrence: FR)
  Receive Date: 20241128
  Receipt Date: 20241212
  Transmission Date: 20250115
  Serious: Yes (Other)
  Sender: JOHNSON AND JOHNSON
  Company Number: None

PATIENT
  Age: 61 Year
  Sex: Female

DRUGS (8)
  1. RILPIVIRINE [Suspect]
     Active Substance: RILPIVIRINE
     Indication: HIV infection
     Dosage: 1 DF, SINGLE  (1ST INJECTION)
     Route: 030
     Dates: start: 20230918, end: 20230918
  2. RILPIVIRINE [Suspect]
     Active Substance: RILPIVIRINE
     Dosage: 1 DF, SINGLE (2ND INJECTION)
     Route: 030
     Dates: end: 20231018
  3. RILPIVIRINE [Suspect]
     Active Substance: RILPIVIRINE
     Dosage: 1 DF, SINGLE (3RD INJECTION)
     Route: 030
     Dates: end: 20231218
  4. RILPIVIRINE [Suspect]
     Active Substance: RILPIVIRINE
     Dosage: 1 DF, SINGLE (4TH INJECTION)
     Route: 030
     Dates: end: 20240219
  5. VOCABRIA [Suspect]
     Active Substance: CABOTEGRAVIR SODIUM
     Indication: HIV infection
     Dosage: 600 MG, SINGLE (1ST INJECTION)
     Route: 030
     Dates: start: 20230918, end: 20230918
  6. VOCABRIA [Suspect]
     Active Substance: CABOTEGRAVIR SODIUM
     Dosage: 600 MG, SINGLE (2ND INJECTION)
     Route: 030
     Dates: end: 20231018
  7. VOCABRIA [Suspect]
     Active Substance: CABOTEGRAVIR SODIUM
     Dosage: 600 MG, SINGLE (3RD INJECTION)
     Route: 030
     Dates: end: 20231218
  8. VOCABRIA [Suspect]
     Active Substance: CABOTEGRAVIR SODIUM
     Dosage: 600 MG, SINGLE (4TH INJECTION)
     Route: 030
     Dates: end: 20240219

REACTIONS (2)
  - Injection site pain [Recovered/Resolved]
  - Gait disturbance [Recovered/Resolved]

NARRATIVE: CASE EVENT DATE: 20230918
